FAERS Safety Report 4904173-3 (Version None)
Quarter: 2006Q1

REPORT INFORMATION
  Report Type: 
  Country: None (occurrence: None)
  Receive Date: 20060208
  Receipt Date: 20050804
  Transmission Date: 20060701
  Serious: No
  Sender: FDA-Public Use
  Company Number: US-GLAXOSMITHKLINE-A0568969A

PATIENT
  Age: 60 Year
  Sex: Female

DRUGS (5)
  1. PAXIL [Suspect]
     Route: 048
  2. PAIN KILLERS [Concomitant]
  3. ESTROGEN REPLACEMENT [Concomitant]
  4. THYROID TAB [Concomitant]
  5. ZOCOR [Concomitant]

REACTIONS (1)
  - DEPRESSION [None]
